FAERS Safety Report 22136869 (Version 1)
Quarter: 2023Q1

REPORT INFORMATION
  Report Type: Spontaneous
  Country: US (occurrence: US)
  Receive Date: 20230324
  Receipt Date: 20230324
  Transmission Date: 20230418
  Serious: No
  Sender: FDA-Public Use
  Company Number: US-TAKEDA-2023TUS030071

PATIENT
  Sex: Female
  Weight: 48 kg

DRUGS (3)
  1. ADDERALL XR [Suspect]
     Active Substance: AMPHETAMINE ASPARTATE\AMPHETAMINE SULFATE\DEXTROAMPHETAMINE SACCHARATE\DEXTROAMPHETAMINE SULFATE
     Indication: Attention deficit hyperactivity disorder
     Dosage: UNK
     Route: 065
  2. ROZEREM [Suspect]
     Active Substance: RAMELTEON
     Indication: Chronic fatigue syndrome
     Dosage: 8 MILLIGRAM
     Route: 065
     Dates: start: 20230215, end: 20230215
  3. NALTREXONE [Concomitant]
     Active Substance: NALTREXONE
     Indication: Fatigue
     Dosage: UNK
     Route: 065

REACTIONS (5)
  - Gait inability [Unknown]
  - Sleep disorder [Unknown]
  - COVID-19 [Unknown]
  - Feeling abnormal [Unknown]
  - Weight decreased [Unknown]
